FAERS Safety Report 15492033 (Version 1)
Quarter: 2018Q4

REPORT INFORMATION
  Report Type: Spontaneous
  Country: DK (occurrence: DK)
  Receive Date: 20181012
  Receipt Date: 20181012
  Transmission Date: 20190205
  Serious: Yes (Hospitalization, Disabling, Other)
  Sender: FDA-Public Use
  Company Number: DK-AUROBINDO-AUR-APL-2018-050377

PATIENT
  Age: 74 Year
  Sex: Female

DRUGS (14)
  1. VENTOLINE                          /00139501/ [Concomitant]
     Active Substance: ALBUTEROL
     Indication: BRONCHOSPASM
     Dosage: DOSIS: DOSERING EFTER SKRIFTLIG ANVISNING. STYRKE: 0,1 MG/DOSIS ()
     Route: 055
     Dates: start: 2014
  2. ANCOZAN [Concomitant]
     Active Substance: LOSARTAN POTASSIUM
     Indication: HYPERTENSION
     Dosage: 50 MILLIGRAM, ONCE A DAY, STYRKE: 50 MG
     Route: 048
     Dates: start: 20180821
  3. PREGABALIN SANDOZ [Concomitant]
     Active Substance: PREGABALIN
     Indication: ANXIETY
     Dosage: 50 MILLIGRAM, ONCE A DAY, STYRKE: 25 MG.
     Route: 048
     Dates: start: 2016
  4. PANTOPRAZOLE [Concomitant]
     Active Substance: PANTOPRAZOLE
     Indication: PROPHYLAXIS AGAINST GASTROINTESTINAL ULCER
     Dosage: 20 MILLIGRAM, ONCE A DAY, STYRKE: 20 MG.
     Route: 048
     Dates: start: 20180824
  5. VITAMINS NOS [Concomitant]
     Active Substance: VITAMINS
     Indication: VITAMIN SUPPLEMENTATION
     Dosage: DOSIS: 1 TABLET MORGEN.
     Route: 048
     Dates: start: 2017
  6. ATORVASTATIN HEXAL [Concomitant]
     Active Substance: ATORVASTATIN
     Indication: HYPERCHOLESTEROLAEMIA
     Dosage: 40 MILLIGRAM, ONCE A DAY, STYRKE: 40 MG.
     Route: 048
     Dates: start: 2014
  7. ESCITALOPRAM TEVA [Concomitant]
     Active Substance: ESCITALOPRAM OXALATE
     Indication: ANXIETY
     Dosage: 10 MILLIGRAM, ONCE A DAY, STYRKE: 10 MG.
     Route: 048
     Dates: start: 20171006
  8. INNOVAIR [Concomitant]
     Active Substance: BECLOMETHASONE DIPROPIONATE\FORMOTEROL
     Indication: CHRONIC OBSTRUCTIVE PULMONARY DISEASE
     Dosage: 4 DOSAGE FORM, ONCE A DAY, STYRKE: 100 + 6 MIKROGRAM/DOSIS
     Route: 055
     Dates: start: 20141203
  9. ALENDRONIC ACID TABLETS [Suspect]
     Active Substance: ALENDRONIC ACID
     Indication: OSTEOPOROSIS
     Dosage: 70 MILLIGRAM, 1 WEEK, STYRKE: 70 MG.
     Route: 048
     Dates: start: 20140422
  10. SEEBRI BREEZHALER [Concomitant]
     Active Substance: GLYCOPYRROLATE
     Indication: CHRONIC OBSTRUCTIVE PULMONARY DISEASE
     Dosage: STYRKE: 44 MIKROGRAM
     Route: 055
     Dates: start: 20150807
  11. UNIKALK BASIC [Concomitant]
     Indication: OSTEOPOROSIS
     Dosage: DOSIS: 1 TABLET MORGEN OG AFTEN. STYRKE: UKENDT. ()
     Route: 048
     Dates: start: 20171006
  12. PARACETAMOL ORIFARM [Concomitant]
     Indication: PAIN
     Dosage: 3000 MILLIGRAM, ONCE A DAY, STYRKE: 500 MG.
     Route: 048
     Dates: start: 20180824
  13. DONEPEZIL STADA [Concomitant]
     Indication: PARKINSON^S DISEASE
     Dosage: 10 MILLIGRAM, ONCE A DAY, STYRKE: 10 MG.
     Route: 048
     Dates: start: 201604
  14. KALEORID [Concomitant]
     Active Substance: POTASSIUM CHLORIDE
     Indication: HYPOKALAEMIA
     Dosage: 1500 MILLIGRAM, ONCE A DAY, STYRKE: 750 MG.
     Route: 048
     Dates: start: 2014

REACTIONS (4)
  - Osteonecrosis of jaw [Not Recovered/Not Resolved]
  - Fistula [Not Recovered/Not Resolved]
  - Sequestrectomy [Unknown]
  - Abscess jaw [Unknown]

NARRATIVE: CASE EVENT DATE: 201806
